FAERS Safety Report 7936832-2 (Version None)
Quarter: 2011Q4

REPORT INFORMATION
  Report Type: 
  Country: None (occurrence: None)
  Receive Date: 20111123
  Receipt Date: 20111122
  Transmission Date: 20120403
  Serious: No
  Sender: FDA-Public Use
  Company Number: US-PFIZER INC-2011285997

PATIENT
  Sex: Female
  Weight: 113 kg

DRUGS (3)
  1. PROZAC [Concomitant]
     Indication: BIPOLAR DISORDER
     Dosage: 40 MG, 1X/DAY
  2. PRISTIQ [Suspect]
     Indication: DEPRESSION
     Dosage: 200 MG, 1X/DAY
     Route: 048
  3. NUVIGIL [Concomitant]
     Indication: SOMNOLENCE
     Dosage: 250 MG, 1X/DAY

REACTIONS (1)
  - MEDICATION RESIDUE [None]
